FAERS Safety Report 6744289-2 (Version None)
Quarter: 2010Q2

REPORT INFORMATION
  Report Type: 
  Country: None (occurrence: None)
  Receive Date: 20100527
  Receipt Date: 20100521
  Transmission Date: 20101027
  Serious: Yes (Other)
  Sender: FDA-Public Use
  Company Number: US-MERCK-1005USA03514

PATIENT
  Sex: Male

DRUGS (1)
  1. SINGULAIR [Suspect]
     Route: 048

REACTIONS (9)
  - AGGRESSION [None]
  - ANGER [None]
  - CRYING [None]
  - DEPRESSION [None]
  - HALLUCINATION [None]
  - MOOD ALTERED [None]
  - MOOD SWINGS [None]
  - SLEEP TERROR [None]
  - SUICIDAL IDEATION [None]
